FAERS Safety Report 10951896 (Version 1)
Quarter: 2015Q1

REPORT INFORMATION
  Report Type: Spontaneous
  Country: CZ (occurrence: CZ)
  Receive Date: 20150325
  Receipt Date: 20150325
  Transmission Date: 20150721
  Serious: Yes (Life-Threatening, Hospitalization, Other)
  Sender: FDA-Public Use
  Company Number: CZ-MERCK-1503CZE009952

PATIENT
  Age: 84 Year
  Sex: Female

DRUGS (15)
  1. INVANZ [Suspect]
     Active Substance: ERTAPENEM SODIUM
     Indication: PNEUMONIA
     Dosage: 1 G, Q24H
     Route: 042
     Dates: start: 20150306, end: 20150309
  2. ATROVENT [Concomitant]
     Active Substance: IPRATROPIUM BROMIDE
     Route: 055
  3. BETALOC ZOK [Concomitant]
     Active Substance: METOPROLOL SUCCINATE
     Route: 048
  4. CALTRATE PLUS (CALCIUM CARBONATE (+) CHOLECALCIFEROL (+) CUPRIC OXIDE [Concomitant]
     Route: 048
  5. TORVACARD 20 [Concomitant]
     Route: 048
  6. TIAPRIDAL [Concomitant]
     Active Substance: TIAPRIDE HYDROCHLORIDE
     Route: 048
  7. MYCOMAX INF [Concomitant]
     Route: 041
     Dates: start: 20150306
  8. LUSOPRESS [Concomitant]
     Active Substance: NITRENDIPINE
     Route: 048
  9. ANOPYRIN [Concomitant]
     Active Substance: ASPIRIN
     Route: 048
  10. ESSENTIALE FORTE (PHOSPHOLIPIDS (UNSPECIFIED)) [Concomitant]
     Route: 048
  11. MUCOSOLVAN [Concomitant]
     Active Substance: AMBROXOL\CLENBUTEROL
     Route: 048
  12. FRAXIPARINE [Concomitant]
     Active Substance: NADROPARIN CALCIUM
     Route: 051
  13. LOSEPRAZOL [Concomitant]
     Active Substance: OMEPRAZOLE
     Route: 048
  14. CODEINE [Concomitant]
     Active Substance: CODEINE
     Route: 048
  15. FURON [Concomitant]
     Active Substance: FUROSEMIDE
     Route: 048

REACTIONS (1)
  - Neutropenia [Unknown]

NARRATIVE: CASE EVENT DATE: 20150309
